FAERS Safety Report 21740418 (Version 3)
Quarter: 2024Q2

REPORT INFORMATION
  Report Type: Report from Study
  Country: CA (occurrence: CA)
  Receive Date: 20221216
  Receipt Date: 20240506
  Transmission Date: 20240715
  Serious: Yes (Other)
  Sender: FDA-Public Use
  Company Number: CA-TAKEDA-2022TUS096289

PATIENT
  Age: 54 Year
  Sex: Male

DRUGS (2)
  1. VEDOLIZUMAB [Suspect]
     Active Substance: VEDOLIZUMAB
     Indication: Colitis ulcerative
     Dosage: 300 MILLIGRAM
     Route: 042
     Dates: start: 20180710
  2. VEDOLIZUMAB [Suspect]
     Active Substance: VEDOLIZUMAB
     Dosage: 300 MILLIGRAM, Q4WEEKS
     Route: 042
     Dates: start: 20230104

REACTIONS (7)
  - Colitis ulcerative [Unknown]
  - Stress [Unknown]
  - Varicose vein [Unknown]
  - Oedema peripheral [Unknown]
  - Off label use [Unknown]
  - Abdominal distension [Unknown]
  - Back pain [Unknown]

NARRATIVE: CASE EVENT DATE: 20230104
